FAERS Safety Report 18208540 (Version 1)
Quarter: 2020Q3

REPORT INFORMATION
  Report Type: Spontaneous
  Country: US (occurrence: US)
  Receive Date: 20200828
  Receipt Date: 20200828
  Transmission Date: 20201103
  Serious: Yes (Death, Other)
  Sender: FDA-Public Use
  Company Number: US-ASTRAZENECA-2020SF07966

PATIENT

DRUGS (1)
  1. NEXIUM 24HR [Suspect]
     Active Substance: ESOMEPRAZOLE MAGNESIUM
     Dosage: FOR VARIOUS DATES AND YEARS BEGINNING IN OR PRIOR TO 2015
     Route: 048

REACTIONS (5)
  - Acute kidney injury [Unknown]
  - Death [Fatal]
  - Metastatic gastric cancer [Unknown]
  - Renal injury [Unknown]
  - Rebound acid hypersecretion [Unknown]
